FAERS Safety Report 5363616-4 (Version None)
Quarter: 2007Q2

REPORT INFORMATION
  Report Type: 
  Country: None (occurrence: None)
  Receive Date: 20070620
  Receipt Date: 20070615
  Transmission Date: 20071010
  Serious: Yes (Death, Hospitalization)
  Sender: FDA-Public Use
  Company Number: B0475651A

PATIENT
  Age: 68 Year
  Sex: Male

DRUGS (6)
  1. LAMICTAL [Suspect]
     Indication: TREMOR
     Dosage: 100MG PER DAY
     Route: 048
     Dates: start: 20070517, end: 20070527
  2. ASPIRIN [Concomitant]
     Indication: THROMBOSIS PROPHYLAXIS
     Dosage: 100MG PER DAY
     Route: 048
  3. FRUSEMIDE [Concomitant]
     Indication: URINARY RETENTION
     Dosage: 500MG PER DAY
     Route: 048
  4. GLYCERYL TRINITRATE [Concomitant]
     Dosage: 5MG PER DAY
     Route: 062
  5. PANTOPRAZOLE SODIUM [Concomitant]
     Dosage: 20MG PER DAY
     Route: 048
  6. SIMVASTATIN [Concomitant]
     Dosage: 10MG PER DAY
     Route: 048

REACTIONS (1)
  - ERYTHEMA MULTIFORME [None]
